FAERS Safety Report 6001654-9 (Version None)
Quarter: 2008Q4

REPORT INFORMATION
  Report Type: 
  Country: None (occurrence: None)
  Receive Date: 20081215
  Receipt Date: 20081211
  Transmission Date: 20090506
  Serious: Yes (Other)
  Sender: FDA-Public Use
  Company Number: DK-ROXANE LABORATORIES, INC.-2008-RO-00396RO

PATIENT
  Age: 12 Year
  Sex: Female

DRUGS (6)
  1. FLUTICASONE PROPIONATE [Suspect]
     Indication: ASTHMA
     Dosage: 1000MCG
     Route: 055
  2. B2 AGONIST [Suspect]
     Indication: ASTHMA
  3. BUDESONIDE/FORMOTEROL [Concomitant]
     Indication: ASTHMA
  4. BUDESONIDE [Concomitant]
     Indication: ASTHMA
     Dosage: 100MCG
  5. PREDNISOLONE [Concomitant]
     Indication: STRESS
  6. PREDNISOLONE [Concomitant]
     Indication: PYREXIA

REACTIONS (6)
  - ADRENOCORTICAL INSUFFICIENCY ACUTE [None]
  - BRONCHITIS CHRONIC [None]
  - HYPERCORTICOIDISM [None]
  - IMMUNE SYSTEM DISORDER [None]
  - PYREXIA [None]
  - STRESS [None]
